FAERS Safety Report 7423016-X (Version None)
Quarter: 2011Q2

REPORT INFORMATION
  Report Type: 
  Country: None (occurrence: None)
  Receive Date: 20110419
  Receipt Date: 20110408
  Transmission Date: 20111010
  Serious: Yes (Hospitalization)
  Sender: FDA-Public Use
  Company Number: US-BAXTER-2011BH008669

PATIENT
  Sex: Male

DRUGS (5)
  1. DIANEAL [Suspect]
     Indication: PERITONEAL DIALYSIS
     Route: 033
     Dates: end: 20110323
  2. EXTRANEAL [Suspect]
     Indication: PERITONEAL DIALYSIS
     Route: 033
     Dates: start: 20110324
  3. DIANEAL [Suspect]
     Route: 033
     Dates: start: 20110324
  4. DIANEAL [Suspect]
     Indication: PERITONEAL DIALYSIS
     Route: 033
  5. EXTRANEAL [Suspect]
     Route: 033
     Dates: end: 20110323

REACTIONS (1)
  - JOINT DISLOCATION [None]
